FAERS Safety Report 17468335 (Version 3)
Quarter: 2020Q1

REPORT INFORMATION
  Report Type: Spontaneous
  Country: US (occurrence: US)
  Receive Date: 20200227
  Receipt Date: 20200312
  Transmission Date: 20200409
  Serious: Yes (Other)
  Sender: FDA-Public Use
  Company Number: US-AMGEN INC.-USASP2020032059

PATIENT
  Age: 43 Year
  Sex: Female
  Weight: 63.49 kg

DRUGS (2)
  1. SUMATRIPTAN. [Concomitant]
     Active Substance: SUMATRIPTAN
     Indication: MIGRAINE
     Dosage: 50 MILLIGRAM, AS NECESSARY
  2. AIMOVIG [Suspect]
     Active Substance: ERENUMAB-AOOE
     Indication: MIGRAINE
     Dosage: UNK, QMO (ONE INJECTION MONTHLY)
     Route: 058
     Dates: start: 2019

REACTIONS (2)
  - Necrosis [Unknown]
  - Facial neuralgia [Not Recovered/Not Resolved]

NARRATIVE: CASE EVENT DATE: 20200216
